FAERS Safety Report 11146185 (Version 2)
Quarter: 2015Q2

REPORT INFORMATION
  Report Type: Spontaneous
  Country: US (occurrence: US)
  Receive Date: 20150528
  Receipt Date: 20150603
  Transmission Date: 20150821
  Serious: Yes (Other)
  Sender: FDA-Public Use
  Company Number: US-PFIZER INC-2015176407

PATIENT
  Age: 69 Year
  Sex: Female
  Weight: 113 kg

DRUGS (9)
  1. ZORVOLEX [Concomitant]
     Active Substance: DICLOFENAC
     Indication: OSTEOARTHRITIS
     Dosage: 18MG (1 CAPSULE) ONE IN MORNING ONE IN EVENING
     Route: 048
  2. FISH OIL [Concomitant]
     Active Substance: FISH OIL
     Indication: BLOOD CHOLESTEROL
     Dosage: ONE GEL CAPSULE ONCE DAY
     Route: 048
  3. OMEPRAZOLE. [Concomitant]
     Active Substance: OMEPRAZOLE
     Indication: GASTROOESOPHAGEAL REFLUX DISEASE
     Dosage: 20 MG, 1X/DAY
     Route: 048
  4. MAGNESIUM [Concomitant]
     Active Substance: MAGNESIUM
     Dosage: 250 MG, 1X/DAY
     Route: 048
  5. FLAXSEED [Concomitant]
     Active Substance: FLAX SEED
     Indication: BLOOD CHOLESTEROL
     Dosage: ONE GEL CAPSULE ONCE DAY
     Route: 048
  6. MELATONIN [Concomitant]
     Active Substance: MELATONIN
     Indication: SLEEP DISORDER
     Dosage: 10MG (1 TABLET) AT BEDTIME
     Route: 048
  7. CELEBREX [Suspect]
     Active Substance: CELECOXIB
     Indication: OSTEOARTHRITIS
     Dosage: 200 MG, 1X/DAY
     Route: 048
     Dates: start: 201409, end: 201505
  8. VITAMIN D3 [Concomitant]
     Active Substance: CHOLECALCIFEROL
     Dosage: 1000 MG, 1X/DAY
     Route: 048
  9. VALIUM [Concomitant]
     Active Substance: DIAZEPAM
     Indication: NEUROPATHY PERIPHERAL
     Dosage: 7.5MG (1 1/2 TABLETS) IN THE MORNING, EACH EVENING
     Route: 048

REACTIONS (13)
  - Skin exfoliation [Recovering/Resolving]
  - Pruritus [Unknown]
  - Cough [Not Recovered/Not Resolved]
  - Fall [Unknown]
  - Rib fracture [Recovering/Resolving]
  - Drug hypersensitivity [Unknown]
  - Burning sensation [Unknown]
  - Skin haemorrhage [Unknown]
  - Joint swelling [Not Recovered/Not Resolved]
  - Aphonia [Recovered/Resolved]
  - Sneezing [Not Recovered/Not Resolved]
  - Fungal infection [Unknown]
  - Malaise [Recovered/Resolved]

NARRATIVE: CASE EVENT DATE: 201409
